FAERS Safety Report 5306983-X (Version None)
Quarter: 2007Q2

REPORT INFORMATION
  Report Type: 
  Country: None (occurrence: None)
  Receive Date: 20070419
  Receipt Date: 20070403
  Transmission Date: 20071010
  Serious: Yes (Hospitalization, Disabling)
  Sender: FDA-Public Use
  Company Number: 2007000154

PATIENT
  Age: 70 Year
  Sex: Female

DRUGS (8)
  1. ERLOTINIB (TABLET) [Suspect]
     Indication: OVARIAN CANCER
     Dosage: 150 MG (Q3W), ORAL
     Route: 048
     Dates: start: 20061220, end: 20070103
  2. PEMETREXED (PEMETREXED) (INJECTION FOR INFUSION) [Suspect]
     Indication: OVARIAN CANCER
     Dosage: 785 (Q3W), INTRAVENOUS
     Route: 042
     Dates: start: 20061219, end: 20061219
  3. PROTONIX [Concomitant]
  4. FOSAMAX [Concomitant]
  5. SYNTHROID [Concomitant]
  6. DARVOCET [Concomitant]
  7. MULTIVITAMIN [Concomitant]
  8. PROCRIT [Concomitant]

REACTIONS (2)
  - VISION BLURRED [None]
  - VISUAL DISTURBANCE [None]
